FAERS Safety Report 6510382-2 (Version None)
Quarter: 2009Q4

REPORT INFORMATION
  Report Type: 
  Country: None (occurrence: None)
  Receive Date: 20091222
  Receipt Date: 20091217
  Transmission Date: 20100525
  Serious: Yes (Other)
  Sender: FDA-Public Use
  Company Number: A0818229A

PATIENT
  Sex: Female
  Weight: 63 kg

DRUGS (2)
  1. AVANDIA [Suspect]
     Dosage: 4MG PER DAY
     Route: 048
     Dates: start: 20060101
  2. CEFPODOXIME PROXETIL [Concomitant]

REACTIONS (2)
  - ANAEMIA [None]
  - OCCULT BLOOD [None]
